FAERS Safety Report 6366644-5 (Version None)
Quarter: 2009Q3

REPORT INFORMATION
  Report Type: 
  Country: None (occurrence: None)
  Receive Date: 20090921
  Receipt Date: 20090916
  Transmission Date: 20100115
  Serious: Yes (Death)
  Sender: FDA-Public Use
  Company Number: PHEH2009US09941

PATIENT
  Sex: Male

DRUGS (6)
  1. EXJADE [Suspect]
     Indication: IRON OVERLOAD
     Dosage: 2500 MG DAILY
     Route: 048
     Dates: start: 20080321, end: 20090718
  2. GLIPIZIDE [Concomitant]
     Indication: DIABETES MELLITUS
     Dosage: 10 MG, QD
     Route: 048
  3. AZOR (OLMESARTAN MEDOXOMIL/ AMLODIPINE BESILATE) [Concomitant]
     Indication: HYPERTENSION
     Dosage: 5/40, QD
     Route: 048
  4. LASIX [Concomitant]
     Indication: HYPERTENSION
     Dosage: UNK, QD
     Route: 048
  5. LEVOTHYROXINE SODIUM [Concomitant]
     Indication: HYPOTHYROIDISM
     Dosage: UNK
     Route: 048
  6. ANTIARRHYTHMICS, CLASS I AND III [Concomitant]

REACTIONS (1)
  - LEUKAEMIA [None]
